FAERS Safety Report 13673426 (Version 1)
Quarter: 2017Q2

REPORT INFORMATION
  Report Type: Spontaneous
  Country: US (occurrence: US)
  Receive Date: 20170621
  Receipt Date: 20170621
  Transmission Date: 20170830
  Serious: No
  Sender: FDA-Public Use
  Company Number: US-ASTRAZENECA-2017SE60781

PATIENT
  Age: 74 Year
  Sex: Female
  Weight: 77.1 kg

DRUGS (1)
  1. BYDUREON [Suspect]
     Active Substance: EXENATIDE
     Indication: TYPE 2 DIABETES MELLITUS
     Route: 058
     Dates: start: 201705

REACTIONS (5)
  - Injection site erythema [Unknown]
  - Pain [Unknown]
  - Injection site irritation [Unknown]
  - Injection site mass [Unknown]
  - Incorrect disposal of product [Not Recovered/Not Resolved]

NARRATIVE: CASE EVENT DATE: 2017
